FAERS Safety Report 23943122 (Version 1)
Quarter: 2024Q2

REPORT INFORMATION
  Report Type: Spontaneous
  Country: RO (occurrence: RO)
  Receive Date: 20240605
  Receipt Date: 20240605
  Transmission Date: 20240716
  Serious: Yes (Other)
  Sender: FDA-Public Use
  Company Number: RO-Merck Healthcare KGaA-2024028698

PATIENT
  Age: 55 Year
  Sex: Male

DRUGS (2)
  1. ERBITUX [Suspect]
     Active Substance: CETUXIMAB
     Indication: Rectosigmoid cancer stage IV
     Dosage: UNK UNK, UNKNOWN
     Route: 065
     Dates: start: 202302, end: 202405
  2. OXALIPLATIN [Suspect]
     Active Substance: OXALIPLATIN
     Indication: Rectosigmoid cancer stage IV
     Dosage: UNK UNK, UNKNOWN
     Route: 065

REACTIONS (1)
  - Paraesthesia [Unknown]
